FAERS Safety Report 24689431 (Version 1)
Quarter: 2024Q4

REPORT INFORMATION
  Report Type: Spontaneous
  Country: FR (occurrence: FR)
  Receive Date: 20241203
  Receipt Date: 20241203
  Transmission Date: 20250115
  Serious: Yes (Hospitalization, Other)
  Sender: JAZZ
  Company Number: None

PATIENT

DRUGS (4)
  1. CANNABIDIOL [Suspect]
     Active Substance: CANNABIDIOL
     Indication: Epilepsy
     Dosage: 800 MILLIGRAM/DAY, 1 PF
     Route: 048
     Dates: start: 20240815
  2. VALPROIC ACID [Suspect]
     Active Substance: VALPROIC ACID
     Indication: Epilepsy
     Dosage: INCREASED TO 6 G/DAY THEN DECREASED FROM 23-SEP-2024 TO 1 G/DAY FROM 04-1OCT-2024
     Route: 042
     Dates: start: 20240722
  3. TOPIRAMATE [Suspect]
     Active Substance: TOPIRAMATE
     Indication: Epilepsy
     Dosage: 400 MG 2/DAY, DECREASED ON 04-OCT-2024 300 MG 2/DAY, DECREASED TO 200 MG 2/DAY ON  08-OCT-2024, 1 PF
     Route: 048
     Dates: start: 20240815
  4. ESKETAMINE [Suspect]
     Active Substance: ESKETAMINE
     Indication: Sedation
     Dosage: UNK
     Route: 042
     Dates: start: 20241007

REACTIONS (2)
  - Hepatic cytolysis [Not Recovered/Not Resolved]
  - Cholestasis [Not Recovered/Not Resolved]

NARRATIVE: CASE EVENT DATE: 20241004
